FAERS Safety Report 23369661 (Version 1)
Quarter: 2024Q1

REPORT INFORMATION
  Report Type: Spontaneous
  Country: US (occurrence: None)
  Receive Date: 20240104
  Receipt Date: 20240104
  Transmission Date: 20240410
  Serious: Yes (Life-Threatening, Hospitalization, Disabling)
  Sender: FDA-Public Use
  Company Number: None

PATIENT
  Age: 51 Year
  Sex: Female
  Weight: 146.7 kg

DRUGS (20)
  1. MODERNA COVID-19 VACCINE [Suspect]
     Active Substance: ELASOMERAN
     Indication: COVID-19 immunisation
     Dosage: OTHER QUANTITY : 2 INJECTION(S);?OTHER FREQUENCY : 1ST, 2ND IN 3WKS;?
     Route: 030
     Dates: start: 20210618, end: 20210618
  2. ALLOPURINOL [Suspect]
     Active Substance: ALLOPURINOL
     Indication: Gout
     Dosage: OTHER QUANTITY : 30 TABLET(S);?FREQUENCY : EVERY DAY BEFORE NOON;?
     Route: 048
     Dates: start: 20210618, end: 20210718
  3. CARVEDILOL [Concomitant]
     Active Substance: CARVEDILOL
  4. ENTRESTO [Concomitant]
     Active Substance: SACUBITRIL\VALSARTAN
  5. FUROSEMIDE [Concomitant]
     Active Substance: FUROSEMIDE
  6. Kenendia [Concomitant]
  7. BUPROPION [Concomitant]
     Active Substance: BUPROPION
  8. CYMBALTA [Concomitant]
     Active Substance: DULOXETINE HYDROCHLORIDE
  9. TOLTERODINE TARTRATE [Concomitant]
     Active Substance: TOLTERODINE TARTRATE
  10. Hydoxyzine [Concomitant]
  11. OXYCODONE [Concomitant]
     Active Substance: OXYCODONE
  12. TRAMADOL ER [Concomitant]
     Active Substance: TRAMADOL HYDROCHLORIDE
  13. CYCLOBENZAPRINE [Concomitant]
     Active Substance: CYCLOBENZAPRINE
  14. ZYRTEC [Concomitant]
     Active Substance: CETIRIZINE HYDROCHLORIDE
  15. ASPIRIN [Concomitant]
     Active Substance: ASPIRIN
  16. TRESIBA [Concomitant]
     Active Substance: INSULIN DEGLUDEC
  17. HUMALOG [Concomitant]
     Active Substance: INSULIN LISPRO
  18. OZEMPIC [Concomitant]
     Active Substance: SEMAGLUTIDE
  19. Stool Softner [Concomitant]
  20. FAMOTIDINE [Concomitant]
     Active Substance: FAMOTIDINE

REACTIONS (29)
  - Migraine [None]
  - Oropharyngeal pain [None]
  - Eye irritation [None]
  - Lip swelling [None]
  - Swelling face [None]
  - Oral pain [None]
  - Mouth ulceration [None]
  - Rash [None]
  - Pruritus [None]
  - Lip blister [None]
  - Pharyngeal ulceration [None]
  - Post vaccination syndrome [None]
  - Stevens-Johnson syndrome [None]
  - Respiratory arrest [None]
  - Multi-organ disorder [None]
  - Lung disorder [None]
  - Staphylococcal infection [None]
  - Pain [None]
  - Cardiac disorder [None]
  - Skin irritation [None]
  - Alopecia [None]
  - Skin disorder [None]
  - Scar [None]
  - Nail discolouration [None]
  - Onychomadesis [None]
  - Quality of life decreased [None]
  - Impaired work ability [None]
  - Walking aid user [None]
  - Balance disorder [None]

NARRATIVE: CASE EVENT DATE: 20210717
